FAERS Safety Report 7574875 (Version 11)
Quarter: 2014Q4

REPORT INFORMATION
  Report Type: Spontaneous
  Country: JP (occurrence: JP)
  Receive Date: 20100907
  Receipt Date: 20141123
  Transmission Date: 20150529
  Serious: Yes (Death, Life-Threatening, Hospitalization, Other)
  Sender: FDA-Public Use
  Company Number: PHHY2010JP56277

PATIENT
  Age: 71 Year
  Sex: Male
  Weight: 62 kg

DRUGS (7)
  1. AFINITOR [Suspect]
     Active Substance: EVEROLIMUS
     Indication: METASTATIC RENAL CELL CARCINOMA
     Dosage: 10 MG, DAILY
     Route: 065
     Dates: start: 201005
  2. AFINITOR [Suspect]
     Active Substance: EVEROLIMUS
     Dosage: 10 MG DAILY
     Route: 048
     Dates: start: 20100507, end: 20100516
  3. AFINITOR [Suspect]
     Active Substance: EVEROLIMUS
     Dosage: 5 MG DAILY
     Route: 048
     Dates: start: 20100721, end: 20100910
  4. AFINITOR [Suspect]
     Active Substance: EVEROLIMUS
     Dosage: 5 MG DAILY
     Route: 048
     Dates: start: 20100517, end: 20100518
  5. AFINITOR [Suspect]
     Active Substance: EVEROLIMUS
     Dosage: 5 MG DAILY
     Route: 048
     Dates: start: 20100526, end: 20100702
  6. ZYLORIC [Concomitant]
     Active Substance: ALLOPURINOL
     Dosage: 100 MG, UNK
     Route: 048
     Dates: end: 20100922
  7. THYRADIN [Concomitant]
     Active Substance: LEVOTHYROXINE
     Dosage: 50 UG, UNK
     Route: 048
     Dates: end: 20100922

REACTIONS (15)
  - Anaemia [Recovering/Resolving]
  - Metastases to lung [Fatal]
  - Metastases to liver [Fatal]
  - Epistaxis [Unknown]
  - Malignant neoplasm progression [Fatal]
  - Cerebral haemorrhage [Fatal]
  - Lymphocyte count decreased [Unknown]
  - Skin disorder [Unknown]
  - Stomatitis [Recovered/Resolved]
  - Thrombocytopenia [Recovering/Resolving]
  - General physical health deterioration [Unknown]
  - Blood alkaline phosphatase increased [Unknown]
  - Interstitial lung disease [Recovering/Resolving]
  - Cough [Recovering/Resolving]
  - Pyrexia [Recovering/Resolving]

NARRATIVE: CASE EVENT DATE: 20100514
